FAERS Safety Report 5007592-2 (Version None)
Quarter: 2006Q2

REPORT INFORMATION
  Report Type: 
  Country: None (occurrence: None)
  Receive Date: 20060522
  Receipt Date: 20060428
  Transmission Date: 20061013
  Serious: Yes (Disabling, Other)
  Sender: FDA-Public Use
  Company Number: US-GILEAD-2006-0009520

PATIENT
  Sex: Male
  Weight: 61.744 kg

DRUGS (6)
  1. TRUVADA [Suspect]
     Indication: HIV INFECTION
     Route: 048
     Dates: start: 20060223
  2. KALETRA [Concomitant]
     Indication: HIV INFECTION
     Route: 048
     Dates: start: 20060222
  3. DAPSONE [Concomitant]
     Indication: PROPHYLAXIS
     Route: 048
     Dates: start: 20060222
  4. AZITHROMYCIN [Concomitant]
     Indication: PROPHYLAXIS
     Route: 048
     Dates: start: 20060222
  5. DARAPRIM [Concomitant]
     Indication: PROPHYLAXIS
     Route: 048
     Dates: start: 20060222
  6. LEUCOVORIN [Concomitant]
     Indication: ANAEMIA
     Route: 048
     Dates: start: 20060222

REACTIONS (2)
  - KAPOSI'S SARCOMA [None]
  - LYMPHOEDEMA [None]
